FAERS Safety Report 9369659 (Version 1)
Quarter: 2013Q2

REPORT INFORMATION
  Report Type: Spontaneous
  Country: CN (occurrence: CN)
  Receive Date: 20130626
  Receipt Date: 20130626
  Transmission Date: 20140414
  Serious: No
  Sender: FDA-Public Use
  Company Number: CN-JNJFOC-20130613212

PATIENT
  Age: 82 Year
  Sex: Male

DRUGS (1)
  1. FENTANYL [Suspect]
     Indication: PAIN
     Dosage: 1 PATCH
     Route: 062
     Dates: start: 20110923, end: 20110927

REACTIONS (4)
  - Rash [Recovered/Resolved]
  - Inappropriate schedule of drug administration [Unknown]
  - Application site pruritus [None]
  - Rash maculo-papular [None]
